FAERS Safety Report 8996222 (Version 3)
Quarter: 2013Q1

REPORT INFORMATION
  Report Type: Spontaneous
  Country: JP (occurrence: JP)
  Receive Date: 20130103
  Receipt Date: 20130213
  Transmission Date: 20140127
  Serious: No
  Sender: FDA-Public Use
  Company Number: JP-OTSUKA-JP-2012-17203

PATIENT
  Age: 81 Year
  Sex: Male

DRUGS (9)
  1. SAMSCA [Suspect]
     Dosage: 15 MG MILLIGRAM(S), QD
     Route: 048
     Dates: start: 20120211, end: 20120214
  2. LASIX [Concomitant]
     Dosage: 40 MG MILLIGRAM(S), QD
     Route: 048
     Dates: start: 20120210, end: 20120214
  3. LASIX [Concomitant]
     Dosage: UNK
     Route: 048
     Dates: start: 20120215, end: 20120222
  4. TANATRIL [Concomitant]
     Dosage: 6 MG MILLIGRAM(S), QD
     Route: 048
     Dates: start: 20120210, end: 20120222
  5. ALDACTONE A [Concomitant]
     Dosage: 25 MG MILLIGRAM(S), QD
     Route: 048
     Dates: start: 20120210, end: 20120214
  6. ALDACTONE A [Concomitant]
     Dosage: UNK
     Route: 048
     Dates: start: 20120215, end: 20120222
  7. WARFARIN K [Concomitant]
     Dosage: 1.5 MG MILLIGRAM(S), QD
     Route: 048
     Dates: start: 20120210, end: 20120222
  8. CYTOTEC [Concomitant]
     Dosage: 100 MG MILLIGRAM(S), QD
     Route: 048
     Dates: start: 20120210, end: 20120222
  9. FERRUM [Concomitant]
     Dosage: 100 MG MILLIGRAM(S), QD
     Route: 048
     Dates: start: 20120210, end: 20120222

REACTIONS (1)
  - Hypernatraemia [Recovered/Resolved]
